FAERS Safety Report 11437994 (Version 3)
Quarter: 2015Q3

REPORT INFORMATION
  Report Type: Report from Study
  Country: US (occurrence: US)
  Receive Date: 20150831
  Receipt Date: 20150925
  Transmission Date: 20151125
  Serious: Yes (Hospitalization)
  Sender: FDA-Public Use
  Company Number: US-ACTELION-A-NJ2015-123112

PATIENT
  Age: 72 Year
  Sex: Female

DRUGS (2)
  1. TRACLEER [Suspect]
     Active Substance: BOSENTAN
     Indication: PULMONARY ARTERIAL HYPERTENSION
     Dosage: UNK
     Route: 048
  2. SILDENAFIL. [Concomitant]
     Active Substance: SILDENAFIL

REACTIONS (8)
  - Anaemia [Recovering/Resolving]
  - Cardiac disorder [Unknown]
  - Renal disorder [Recovering/Resolving]
  - Atrial fibrillation [Recovering/Resolving]
  - Cardiac pacemaker insertion [Recovering/Resolving]
  - Syncope [Recovering/Resolving]
  - Heart rate decreased [Recovering/Resolving]
  - Transfusion [Recovering/Resolving]
